FAERS Safety Report 7365087-5 (Version None)
Quarter: 2011Q1

REPORT INFORMATION
  Report Type: 
  Country: None (occurrence: None)
  Receive Date: 20110321
  Receipt Date: 20110318
  Transmission Date: 20110831
  Serious: Yes (Hospitalization)
  Sender: FDA-Public Use
  Company Number: CA-ABBOTT-11P-028-0712952-00

PATIENT
  Sex: Male
  Weight: 81.72 kg

DRUGS (2)
  1. IMURAN [Concomitant]
     Indication: CROHN'S DISEASE
     Dosage: DAILY
     Route: 048
     Dates: start: 19980101
  2. HUMIRA [Suspect]
     Indication: CROHN'S DISEASE
     Route: 058
     Dates: start: 20090318

REACTIONS (3)
  - HEADACHE [None]
  - SINUSITIS [None]
  - COUGH [None]
